FAERS Safety Report 15206004 (Version 1)
Quarter: 2018Q3

REPORT INFORMATION
  Report Type: Spontaneous
  Country: US (occurrence: US)
  Receive Date: 20180727
  Receipt Date: 20180727
  Transmission Date: 20181010
  Serious: Yes (Hospitalization, Other)
  Sender: FDA-Public Use
  Company Number: US-ABBVIE-18K-163-2430878-00

PATIENT
  Sex: Female

DRUGS (1)
  1. HUMIRA [Suspect]
     Active Substance: ADALIMUMAB
     Indication: HIDRADENITIS
     Route: 058
     Dates: start: 2014

REACTIONS (5)
  - Drug ineffective [Unknown]
  - Weight increased [Unknown]
  - Apparent death [Unknown]
  - Injection site pain [Unknown]
  - Hidradenitis [Unknown]

NARRATIVE: CASE EVENT DATE: 201704
